FAERS Safety Report 12254051 (Version 2)
Quarter: 2016Q3

REPORT INFORMATION
  Report Type: Report from Study
  Country: JP (occurrence: JP)
  Receive Date: 20160411
  Receipt Date: 20160713
  Transmission Date: 20161109
  Serious: Yes (Death, Life-Threatening, Hospitalization)
  Sender: FDA-Public Use
  Company Number: JP-SA-2015SA131733

PATIENT
  Age: 25 Year
  Sex: Female

DRUGS (122)
  1. EVOLTRA [Suspect]
     Active Substance: CLOFARABINE
     Indication: ACUTE LYMPHOCYTIC LEUKAEMIA RECURRENT
     Route: 042
     Dates: start: 20150814, end: 20150818
  2. LASIX [Suspect]
     Active Substance: FUROSEMIDE
     Indication: URINE OUTPUT
     Route: 042
     Dates: start: 20150905, end: 20150912
  3. DIFLUCAN [Concomitant]
     Active Substance: FLUCONAZOLE
     Indication: ACUTE LYMPHOCYTIC LEUKAEMIA RECURRENT
     Route: 048
     Dates: end: 20150828
  4. FINIBAX [Concomitant]
     Active Substance: DORIPENEM MONOHYDRATE
     Indication: ACUTE LYMPHOCYTIC LEUKAEMIA RECURRENT
     Route: 041
     Dates: start: 20150827, end: 20150904
  5. ALOXI [Concomitant]
     Active Substance: PALONOSETRON HYDROCHLORIDE
     Indication: ACUTE LYMPHOCYTIC LEUKAEMIA RECURRENT
     Route: 041
     Dates: start: 20150814, end: 20150814
  6. SULFAMETHOXAZOLE AND TRIMETHOPRIM [Concomitant]
     Active Substance: SULFAMETHOXAZOLE\TRIMETHOPRIM
     Indication: ACUTE LYMPHOCYTIC LEUKAEMIA RECURRENT
     Route: 048
     Dates: start: 20150901, end: 20150901
  7. NOREPINEPHRINE [Concomitant]
     Active Substance: NOREPINEPHRINE\NOREPINEPHRINE BITARTRATE
     Indication: ACUTE LYMPHOCYTIC LEUKAEMIA RECURRENT
     Route: 042
     Dates: start: 20150907, end: 20150908
  8. FILGRASTIM [Concomitant]
     Active Substance: FILGRASTIM
     Indication: ACUTE LYMPHOCYTIC LEUKAEMIA RECURRENT
     Route: 042
     Dates: start: 20150907, end: 20150917
  9. VANCOMYCIN [Concomitant]
     Active Substance: VANCOMYCIN
     Indication: ACUTE LYMPHOCYTIC LEUKAEMIA RECURRENT
     Route: 041
     Dates: start: 20150830, end: 20150902
  10. BROMHEXINE HYDROCHLORIDE [Concomitant]
     Active Substance: BROMHEXINE HYDROCHLORIDE
     Route: 055
  11. VANCOMYCIN HYDROCHLORIDE. [Concomitant]
     Active Substance: VANCOMYCIN HYDROCHLORIDE
     Dosage: POWDER
  12. MAGLAX [Concomitant]
     Active Substance: MAGNESIUM OXIDE
  13. CALONAL [Concomitant]
     Active Substance: ACETAMINOPHEN
  14. OMEPRAL [Concomitant]
     Active Substance: OMEPRAZOLE
  15. LASIX [Suspect]
     Active Substance: FUROSEMIDE
     Indication: URINE OUTPUT
     Route: 042
     Dates: start: 20150815, end: 20150818
  16. FEBURIC [Concomitant]
     Active Substance: FEBUXOSTAT
     Indication: ACUTE LYMPHOCYTIC LEUKAEMIA RECURRENT
     Route: 048
     Dates: end: 20150830
  17. BIO-THREE [Concomitant]
     Active Substance: HERBALS
     Indication: ACUTE LYMPHOCYTIC LEUKAEMIA RECURRENT
     Route: 048
     Dates: start: 20150824, end: 20150828
  18. ALBUMIN TANNATE [Concomitant]
     Active Substance: ALBUMIN BOVINE\TANNIC ACID
     Indication: ACUTE LYMPHOCYTIC LEUKAEMIA RECURRENT
     Dosage: POWDER
     Route: 048
     Dates: start: 20150824, end: 20150828
  19. REBAMIPIDE [Concomitant]
     Active Substance: REBAMIPIDE
     Route: 048
     Dates: start: 20150830, end: 20150914
  20. SODIUM CHLORIDE. [Concomitant]
     Active Substance: SODIUM CHLORIDE
     Indication: ACUTE LYMPHOCYTIC LEUKAEMIA RECURRENT
     Route: 042
     Dates: start: 20150907, end: 20150907
  21. SODIUM CHLORIDE. [Concomitant]
     Active Substance: SODIUM CHLORIDE
     Indication: ACUTE LYMPHOCYTIC LEUKAEMIA RECURRENT
     Dosage: 10-100
     Route: 042
     Dates: end: 20151012
  22. MINOCYCLINE [Concomitant]
     Active Substance: MINOCYCLINE\MINOCYCLINE HYDROCHLORIDE
     Indication: ACUTE LYMPHOCYTIC LEUKAEMIA RECURRENT
     Route: 041
     Dates: end: 20150815
  23. SAXIZON [Concomitant]
     Active Substance: HYDROCORTISONE SODIUM SUCCINATE
     Indication: ACUTE LYMPHOCYTIC LEUKAEMIA RECURRENT
     Route: 042
     Dates: start: 20150814, end: 20150818
  24. ALOXI [Concomitant]
     Active Substance: PALONOSETRON HYDROCHLORIDE
     Indication: ACUTE LYMPHOCYTIC LEUKAEMIA RECURRENT
     Route: 041
     Dates: start: 20150902, end: 20150902
  25. ALDACTONE-A [Concomitant]
     Active Substance: SPIRONOLACTONE
     Indication: ACUTE LYMPHOCYTIC LEUKAEMIA RECURRENT
     Route: 048
     Dates: start: 20150901, end: 20150913
  26. NEO-MINOPHAGEN C [Concomitant]
     Active Substance: AMMONIUM GLYCYRRHIZATE
     Indication: ACUTE LYMPHOCYTIC LEUKAEMIA RECURRENT
     Dosage: 3 DAYS PER WEEK
     Route: 042
     Dates: start: 20150817, end: 20150906
  27. OXINORM [Concomitant]
     Active Substance: OXYCODONE HYDROCHLORIDE
     Dosage: OXINORM POWDER
  28. NOVAMIN [Concomitant]
     Active Substance: PROCHLORPERAZINE MALEATE
  29. DROTEBANOL [Concomitant]
  30. PRIMPERAN [Concomitant]
     Active Substance: METOCLOPRAMIDE HYDROCHLORIDE
  31. ELNEOPA NO 1 [Concomitant]
  32. CALCICOL [Concomitant]
     Active Substance: CALCIUM GLUCONATE
  33. LASIX [Suspect]
     Active Substance: FUROSEMIDE
     Indication: OEDEMA
     Route: 042
     Dates: start: 20150829, end: 20150831
  34. LASIX [Suspect]
     Active Substance: FUROSEMIDE
     Indication: URINE OUTPUT
     Dosage: DOSE: 10-20 MG/ BODY
     Route: 042
     Dates: start: 20150925, end: 20151006
  35. POSTERISAN FORTE [Concomitant]
     Active Substance: LIDOCAINE
     Indication: ACUTE LYMPHOCYTIC LEUKAEMIA RECURRENT
     Route: 061
     Dates: start: 20150824, end: 20150914
  36. PASTARON [Concomitant]
     Active Substance: UREA
     Indication: ACUTE LYMPHOCYTIC LEUKAEMIA RECURRENT
     Dosage: LOTION, Q.S
     Route: 061
     Dates: start: 20150830, end: 20150924
  37. VANCOMYCIN [Concomitant]
     Active Substance: VANCOMYCIN
     Indication: ACUTE LYMPHOCYTIC LEUKAEMIA RECURRENT
     Route: 041
     Dates: start: 20150907, end: 20150907
  38. CODEINE PHOSPHATE [Concomitant]
     Active Substance: CODEINE PHOSPHATE
     Dosage: CODEINE PHOSPHATE POWDER 1%
  39. OXYCONTIN [Concomitant]
     Active Substance: OXYCODONE HYDROCHLORIDE
  40. HIRUDOID [Concomitant]
     Active Substance: GLYCOSAMINOGLYCANS
     Dosage: HIRUDOID LOTION
  41. TAKECAB [Concomitant]
     Active Substance: VONOPRAZAN FUMURATE
  42. FENTOS [Concomitant]
     Active Substance: FENTANYL
  43. SANMEL [Concomitant]
     Dosage: SOLUTION
     Route: 048
  44. BUSCOPAN [Concomitant]
     Active Substance: BUTYLSCOPOLAMINE BROMIDE
  45. ZYPREXA [Concomitant]
     Active Substance: OLANZAPINE
  46. SAMSCA [Concomitant]
     Active Substance: TOLVAPTAN
  47. NOVOLIN R [Concomitant]
     Active Substance: INSULIN HUMAN
  48. LASIX [Suspect]
     Active Substance: FUROSEMIDE
     Indication: OEDEMA
     Route: 042
     Dates: start: 20150901, end: 20150920
  49. LASIX [Suspect]
     Active Substance: FUROSEMIDE
     Indication: URINE OUTPUT
     Route: 042
     Dates: start: 20150901, end: 20150920
  50. LASIX [Suspect]
     Active Substance: FUROSEMIDE
     Indication: OEDEMA
     Dosage: DOSE: 10-20 MG/ BODY
     Route: 042
     Dates: start: 20151009, end: 20151012
  51. LASIX [Suspect]
     Active Substance: FUROSEMIDE
     Indication: OEDEMA
     Dosage: DOSE: 10-20 MG/ BODY
     Route: 042
     Dates: start: 20150925, end: 20151006
  52. MINOCYCLINE [Concomitant]
     Active Substance: MINOCYCLINE\MINOCYCLINE HYDROCHLORIDE
     Indication: ACUTE LYMPHOCYTIC LEUKAEMIA RECURRENT
     Route: 041
     Dates: start: 20150907, end: 20150920
  53. DEXART [Concomitant]
     Active Substance: DEXAMETHASONE SODIUM PHOSPHATE
     Indication: ACUTE LYMPHOCYTIC LEUKAEMIA RECURRENT
     Route: 042
     Dates: start: 20150902, end: 20150906
  54. K-SUPPLY [Concomitant]
     Active Substance: POTASSIUM CHLORIDE
     Indication: ACUTE LYMPHOCYTIC LEUKAEMIA RECURRENT
     Route: 048
     Dates: start: 20150901, end: 20150909
  55. FILGRASTIM [Concomitant]
     Active Substance: FILGRASTIM
     Indication: ACUTE LYMPHOCYTIC LEUKAEMIA RECURRENT
     Route: 058
     Dates: start: 20150825, end: 20150827
  56. ROPION [Concomitant]
     Active Substance: FLURBIPROFEN AXETIL
     Indication: ACUTE LYMPHOCYTIC LEUKAEMIA RECURRENT
     Route: 042
     Dates: start: 20150831, end: 20150901
  57. POLARAMINE [Concomitant]
     Active Substance: DEXCHLORPHENIRAMINE MALEATE
     Indication: ACUTE LYMPHOCYTIC LEUKAEMIA RECURRENT
     Route: 042
     Dates: start: 20150907, end: 20150907
  58. LUNESTA [Concomitant]
     Active Substance: ESZOPICLONE
  59. ATARAX-P [Concomitant]
     Active Substance: HYDROXYZINE HYDROCHLORIDE
     Route: 051
  60. EVOLTRA [Suspect]
     Active Substance: CLOFARABINE
     Indication: ACUTE LYMPHOCYTIC LEUKAEMIA RECURRENT
     Route: 042
     Dates: start: 20150902, end: 20150906
  61. EVOLTRA [Suspect]
     Active Substance: CLOFARABINE
     Indication: ACUTE LYMPHOCYTIC LEUKAEMIA RECURRENT
     Route: 042
     Dates: start: 20150917, end: 20150921
  62. LASIX [Suspect]
     Active Substance: FUROSEMIDE
     Indication: URINE OUTPUT
     Dosage: DOSE: 10-20 MG/ BODY
     Route: 042
     Dates: start: 20151009, end: 20151012
  63. ZOSYN [Suspect]
     Active Substance: PIPERACILLIN SODIUM\TAZOBACTAM SODIUM
     Route: 042
     Dates: start: 20150820, end: 20150826
  64. ZOSYN [Suspect]
     Active Substance: PIPERACILLIN SODIUM\TAZOBACTAM SODIUM
     Route: 042
     Dates: start: 20150907, end: 20150907
  65. ZOSYN [Suspect]
     Active Substance: PIPERACILLIN SODIUM\TAZOBACTAM SODIUM
     Route: 042
     Dates: start: 20150923, end: 20150925
  66. DECADRON [Concomitant]
     Active Substance: DEXAMETHASONE
     Indication: ACUTE LYMPHOCYTIC LEUKAEMIA RECURRENT
     Route: 048
     Dates: end: 20150814
  67. URSODEOXYCHOLIC ACID [Concomitant]
     Active Substance: URSODIOL
     Indication: ACUTE LYMPHOCYTIC LEUKAEMIA RECURRENT
     Route: 048
     Dates: start: 20150814, end: 20150911
  68. SODIUM CHLORIDE. [Concomitant]
     Active Substance: SODIUM CHLORIDE
     Indication: ACUTE LYMPHOCYTIC LEUKAEMIA RECURRENT
     Dosage: FREQUENCY: Q4W
     Route: 055
     Dates: start: 20150831, end: 20150929
  69. SODIUM CHLORIDE. [Concomitant]
     Active Substance: SODIUM CHLORIDE
     Indication: ACUTE LYMPHOCYTIC LEUKAEMIA RECURRENT
     Dosage: 5 DAYS PER WEEK
     Route: 042
     Dates: start: 20150907, end: 20151012
  70. FINIBAX [Concomitant]
     Active Substance: DORIPENEM MONOHYDRATE
     Indication: ACUTE LYMPHOCYTIC LEUKAEMIA RECURRENT
     Route: 041
     Dates: start: 20150907, end: 20150907
  71. GLUCOSE [Concomitant]
     Active Substance: DEXTROSE
     Indication: ACUTE LYMPHOCYTIC LEUKAEMIA RECURRENT
     Route: 042
     Dates: start: 20150907, end: 20150911
  72. CARBOHYDRATES NOS/SODIUM LACTATE/SODIUM CHLORIDE/POTASSIUM CHLORIDE [Concomitant]
     Indication: ACUTE LYMPHOCYTIC LEUKAEMIA RECURRENT
     Route: 042
     Dates: start: 20150814, end: 20150819
  73. RASURITEK [Concomitant]
     Active Substance: RASBURICASE
     Indication: ACUTE LYMPHOCYTIC LEUKAEMIA RECURRENT
     Route: 042
     Dates: start: 20150814, end: 20150814
  74. RASURITEK [Concomitant]
     Active Substance: RASBURICASE
     Indication: ACUTE LYMPHOCYTIC LEUKAEMIA RECURRENT
     Route: 042
     Dates: start: 20150901, end: 20150901
  75. VANCOMYCIN [Concomitant]
     Active Substance: VANCOMYCIN
     Indication: ACUTE LYMPHOCYTIC LEUKAEMIA RECURRENT
     Route: 041
     Dates: start: 20150902, end: 20150903
  76. OXYCONTIN [Concomitant]
     Active Substance: OXYCODONE HYDROCHLORIDE
  77. BROCIN-CODEINE [Concomitant]
     Dosage: BROCIN-CODEINE COMBINATION SYRUP, CONC
  78. MOHRUS [Concomitant]
     Active Substance: KETOPROFEN
  79. TEICOPLANIN [Concomitant]
     Active Substance: TEICOPLANIN
     Route: 041
  80. LEUPLIN [Concomitant]
     Active Substance: LEUPROLIDE ACETATE
  81. ACELIO [Concomitant]
     Active Substance: ACETAMINOPHEN
     Route: 042
  82. PREDONINE [Concomitant]
     Active Substance: PREDNISOLONE\PREDNISOLONE ACETATE\PREDNISOLONE SODIUM SUCCINATE
  83. FUNGUARD [Concomitant]
     Active Substance: MICAFUNGIN SODIUM
     Route: 041
  84. MIDAZOLAM [Concomitant]
     Active Substance: MIDAZOLAM\MIDAZOLAM HYDROCHLORIDE
  85. LASIX [Suspect]
     Active Substance: FUROSEMIDE
     Indication: OEDEMA
     Route: 042
     Dates: start: 20150815, end: 20150818
  86. LASIX [Suspect]
     Active Substance: FUROSEMIDE
     Indication: URINE OUTPUT
     Route: 042
     Dates: start: 20150829, end: 20150831
  87. METHYLPREDNISOLONE. [Suspect]
     Active Substance: METHYLPREDNISOLONE
     Indication: LUNG INFILTRATION
     Route: 042
     Dates: start: 20151009, end: 20151011
  88. METHYLPREDNISOLONE. [Suspect]
     Active Substance: METHYLPREDNISOLONE
     Indication: LUNG INFILTRATION
     Route: 042
     Dates: start: 20150920, end: 20150922
  89. BROTIZOLAM [Concomitant]
     Active Substance: BROTIZOLAM
     Indication: ACUTE LYMPHOCYTIC LEUKAEMIA RECURRENT
     Dosage: DOSE: 5 DAYS PER WEEK
     Route: 048
     Dates: end: 20150920
  90. FEBURIC [Concomitant]
     Active Substance: FEBUXOSTAT
     Indication: ACUTE LYMPHOCYTIC LEUKAEMIA RECURRENT
     Dosage: DOSE: 20
     Route: 048
     Dates: start: 20150831, end: 20150907
  91. GLUCOSE [Concomitant]
     Active Substance: DEXTROSE
     Indication: ACUTE LYMPHOCYTIC LEUKAEMIA RECURRENT
     Route: 042
     Dates: start: 20150831, end: 20150920
  92. DEXART [Concomitant]
     Active Substance: DEXAMETHASONE SODIUM PHOSPHATE
     Indication: ACUTE LYMPHOCYTIC LEUKAEMIA RECURRENT
     Route: 042
     Dates: end: 20150818
  93. SAXIZON [Concomitant]
     Active Substance: HYDROCORTISONE SODIUM SUCCINATE
     Indication: ACUTE LYMPHOCYTIC LEUKAEMIA RECURRENT
     Dosage: 2 DAYS PER WEEK
     Route: 042
     Dates: start: 20150819, end: 20150831
  94. HUSTAZOL [Concomitant]
     Active Substance: CLOPERASTINE
     Dosage: HUSTAZOL SUGAR-COATED TABLET
  95. LOPEMIN [Concomitant]
     Active Substance: LOPERAMIDE HYDROCHLORIDE
  96. ABSTRAL [Concomitant]
     Active Substance: FENTANYL CITRATE
  97. PACIL [Concomitant]
     Route: 041
  98. METHYLPREDNISOLONE. [Suspect]
     Active Substance: METHYLPREDNISOLONE
     Indication: LUNG INFILTRATION
     Route: 042
     Dates: start: 20150901, end: 20150903
  99. NEXIUM [Concomitant]
     Active Substance: ESOMEPRAZOLE MAGNESIUM
     Indication: ACUTE LYMPHOCYTIC LEUKAEMIA RECURRENT
     Route: 048
     Dates: end: 20150930
  100. LOXOPROFEN NA [Concomitant]
     Active Substance: LOXOPROFEN SODIUM
     Indication: ACUTE LYMPHOCYTIC LEUKAEMIA RECURRENT
     Route: 048
     Dates: start: 20150830, end: 20150914
  101. SODIUM CHLORIDE. [Concomitant]
     Active Substance: SODIUM CHLORIDE
     Indication: ACUTE LYMPHOCYTIC LEUKAEMIA RECURRENT
     Route: 042
     Dates: end: 20150815
  102. SODIUM CHLORIDE. [Concomitant]
     Active Substance: SODIUM CHLORIDE
     Indication: ACUTE LYMPHOCYTIC LEUKAEMIA RECURRENT
     Route: 042
     Dates: start: 20150814, end: 20150818
  103. SODIUM CHLORIDE. [Concomitant]
     Active Substance: SODIUM CHLORIDE
     Indication: ACUTE LYMPHOCYTIC LEUKAEMIA RECURRENT
     Route: 042
     Dates: start: 20150902, end: 20150906
  104. FINIBAX [Concomitant]
     Active Substance: DORIPENEM MONOHYDRATE
     Indication: ACUTE LYMPHOCYTIC LEUKAEMIA RECURRENT
     Route: 041
     Dates: end: 20150815
  105. CARBOHYDRATES NOS/SODIUM LACTATE/SODIUM CHLORIDE/POTASSIUM CHLORIDE [Concomitant]
     Indication: ACUTE LYMPHOCYTIC LEUKAEMIA RECURRENT
     Route: 042
     Dates: start: 20150902, end: 20150925
  106. SAXIZON [Concomitant]
     Active Substance: HYDROCORTISONE SODIUM SUCCINATE
     Indication: ACUTE LYMPHOCYTIC LEUKAEMIA RECURRENT
     Dosage: 5 DAYS PER WEEK
     Route: 042
     Dates: start: 20150904, end: 20151012
  107. CARBOCISTEINE [Concomitant]
     Active Substance: CARBOCYSTEINE
  108. MYONAL [Concomitant]
     Active Substance: EPERISONE HYDROCHLORIDE
  109. KCL [Concomitant]
     Active Substance: POTASSIUM CHLORIDE
  110. PANTOL [Concomitant]
     Active Substance: DEXPANTHENOL
  111. LASIX [Suspect]
     Active Substance: FUROSEMIDE
     Indication: OEDEMA
     Route: 042
     Dates: start: 20150905, end: 20150912
  112. CALONAL [Concomitant]
     Active Substance: ACETAMINOPHEN
     Indication: ACUTE LYMPHOCYTIC LEUKAEMIA RECURRENT
     Route: 048
     Dates: start: 20150820, end: 20150914
  113. VFEND [Concomitant]
     Active Substance: VORICONAZOLE
     Indication: ACUTE LYMPHOCYTIC LEUKAEMIA RECURRENT
     Route: 048
     Dates: start: 20150829, end: 20150909
  114. VENETLIN [Concomitant]
     Active Substance: ALBUTEROL SULFATE
     Indication: ACUTE LYMPHOCYTIC LEUKAEMIA RECURRENT
     Dosage: FREQUENCY: Q4W
     Route: 055
     Dates: start: 20150831, end: 20150929
  115. SODIUM CHLORIDE. [Concomitant]
     Active Substance: SODIUM CHLORIDE
     Indication: ACUTE LYMPHOCYTIC LEUKAEMIA RECURRENT
     Route: 042
     Dates: start: 20150820, end: 20150917
  116. BENAMBAX [Concomitant]
     Active Substance: PENTAMIDINE
     Indication: ACUTE LYMPHOCYTIC LEUKAEMIA RECURRENT
     Dosage: Q4W
     Route: 055
     Dates: start: 20150831, end: 20150929
  117. GLUCOSE [Concomitant]
     Active Substance: DEXTROSE
     Indication: ACUTE LYMPHOCYTIC LEUKAEMIA RECURRENT
     Route: 042
     Dates: start: 20150907, end: 20150920
  118. DIAMOX SEQUELS [Concomitant]
     Active Substance: ACETAZOLAMIDE
     Indication: ACUTE LYMPHOCYTIC LEUKAEMIA RECURRENT
     Route: 042
     Dates: start: 20150826, end: 20150826
  119. FUROSEMIDE. [Concomitant]
     Active Substance: FUROSEMIDE
  120. BFLUID [Concomitant]
     Active Substance: AMINO ACIDS\DEXTROSE\ELECTROLYTES NOS\VITAMINS
  121. CANCIDAS [Concomitant]
     Active Substance: CASPOFUNGIN ACETATE
     Route: 041
  122. FIRSTCIN [Concomitant]
     Active Substance: CEFOZOPRAN HYDROCHLORIDE
     Route: 042

REACTIONS (18)
  - Neutrophil count decreased [Recovered/Resolved]
  - Cardiac failure [Fatal]
  - Skin striae [Recovering/Resolving]
  - Haemoglobin decreased [Not Recovered/Not Resolved]
  - Hepatic function abnormal [Recovered/Resolved]
  - Septic shock [Recovered/Resolved]
  - Febrile neutropenia [Recovered/Resolved]
  - Hypocalcaemia [Recovered/Resolved]
  - Neutrophil count decreased [Not Recovered/Not Resolved]
  - Hypomagnesaemia [Recovered/Resolved]
  - Oedema [Not Recovered/Not Resolved]
  - Diarrhoea [Recovered/Resolved]
  - Hepatic failure [Fatal]
  - Diarrhoea [Recovered/Resolved]
  - Renal impairment [Recovered/Resolved]
  - Hepatic function abnormal [Recovered/Resolved]
  - Platelet count decreased [Not Recovered/Not Resolved]
  - Hypokalaemia [Recovered/Resolved]

NARRATIVE: CASE EVENT DATE: 20150815
